FAERS Safety Report 10424536 (Version 2)
Quarter: 2014Q3

REPORT INFORMATION
  Report Type: Report from Study
  Country: US (occurrence: US)
  Receive Date: 20140902
  Receipt Date: 20140902
  Transmission Date: 20150326
  Serious: Yes (Other)
  Sender: FDA-Public Use
  Company Number: US-SA-2013SA110759

PATIENT
  Age: 43 Year
  Sex: Female

DRUGS (2)
  1. AUBAGIO [Suspect]
     Active Substance: TERIFLUNOMIDE
     Indication: MULTIPLE SCLEROSIS
     Route: 048
     Dates: end: 20140731
  2. AUBAGIO [Suspect]
     Active Substance: TERIFLUNOMIDE
     Indication: MULTIPLE SCLEROSIS
     Route: 048
     Dates: start: 20131020

REACTIONS (11)
  - Cough [Not Recovered/Not Resolved]
  - Nausea [Recovered/Resolved]
  - Drug dose omission [Unknown]
  - Hepatic enzyme increased [Unknown]
  - Fatigue [Unknown]
  - Hair texture abnormal [Unknown]
  - Nasopharyngitis [Not Recovered/Not Resolved]
  - Alopecia [Unknown]
  - Adverse event [Unknown]
  - Abdominal discomfort [Not Recovered/Not Resolved]
  - Diarrhoea [Not Recovered/Not Resolved]

NARRATIVE: CASE EVENT DATE: 2013
